FAERS Safety Report 7576623-8 (Version None)
Quarter: 2011Q2

REPORT INFORMATION
  Report Type: 
  Country: None (occurrence: None)
  Receive Date: 20110628
  Receipt Date: 20110620
  Transmission Date: 20111010
  Serious: Yes (Life-Threatening, Hospitalization, Other)
  Sender: FDA-Public Use
  Company Number: US-ELI_LILLY_AND_COMPANY-US200903002757

PATIENT
  Sex: Female
  Weight: 83.9 kg

DRUGS (7)
  1. GLIPIZIDE [Concomitant]
     Dosage: 10 MG, DAILY (1/D)
     Dates: end: 20080401
  2. METFORMIN HCL [Concomitant]
     Indication: DIABETES MELLITUS
     Dosage: 1000 MG, 2/D
     Dates: start: 19980101
  3. BYETTA [Suspect]
     Dosage: UNK, UNKNOWN
     Route: 065
     Dates: start: 20060414, end: 20080501
  4. TRICOR [Concomitant]
     Indication: BLOOD CHOLESTEROL
     Dosage: 145 MG, DAILY (1/D)
     Dates: start: 20080204, end: 20080501
  5. VYTORIN [Concomitant]
     Indication: BLOOD CHOLESTEROL
     Dates: start: 20080202, end: 20080501
  6. LEVOTHYROXINE SODIUM [Concomitant]
     Dosage: 0.112 UG, UNK
  7. LEVOTHYROXINE SODIUM [Concomitant]
     Indication: HORMONE REPLACEMENT THERAPY
     Dosage: 0.137 UG, UNK

REACTIONS (15)
  - PANCREATITIS HAEMORRHAGIC [None]
  - TRACHEAL STENOSIS [None]
  - PNEUMONIA [None]
  - HYPERLIPIDAEMIA [None]
  - PULMONARY EMBOLISM [None]
  - ANAEMIA [None]
  - PANCREATITIS [None]
  - PLEURAL EFFUSION [None]
  - HYPOMAGNESAEMIA [None]
  - BACTERIAL DISEASE CARRIER [None]
  - RENAL FAILURE ACUTE [None]
  - CHOLELITHIASIS [None]
  - ACUTE RESPIRATORY FAILURE [None]
  - LEUKOCYTOSIS [None]
  - DIARRHOEA [None]
